FAERS Safety Report 19891236 (Version 1)
Quarter: 2021Q3

REPORT INFORMATION
  Report Type: Spontaneous
  Country: FI (occurrence: FI)
  Receive Date: 20210928
  Receipt Date: 20210928
  Transmission Date: 20211014
  Serious: Yes (Other)
  Sender: FDA-Public Use
  Company Number: NVSC2021FI218541

PATIENT
  Age: 20 Year
  Sex: Female

DRUGS (3)
  1. ESCITALOPRAM ORION [Concomitant]
     Active Substance: ESCITALOPRAM OXALATE
     Indication: DEPRESSION
     Dosage: 15 MG, QD
     Route: 048
     Dates: start: 2018
  2. BUPROPION SANDOZ [Suspect]
     Active Substance: BUPROPION
     Indication: FATIGUE
     Dosage: 150 MG, QD
     Route: 048
     Dates: start: 202105, end: 2021
  3. BUPROPION SANDOZ [Suspect]
     Active Substance: BUPROPION
     Indication: DISTURBANCE IN ATTENTION

REACTIONS (7)
  - Rash [Recovered/Resolved]
  - Catatonia [Recovered/Resolved]
  - Paranoia [Recovered/Resolved]
  - Muscle twitching [Recovered/Resolved]
  - Dyskinesia [Recovered/Resolved]
  - Off label use [Recovered/Resolved]
  - Hallucination, visual [Recovered/Resolved]

NARRATIVE: CASE EVENT DATE: 202108
